FAERS Safety Report 23639114 (Version 1)
Quarter: 2024Q1

REPORT INFORMATION
  Report Type: Spontaneous
  Country: SE (occurrence: None)
  Receive Date: 20240315
  Receipt Date: 20240315
  Transmission Date: 20240410
  Serious: Yes (Other)
  Sender: FDA-Public Use
  Company Number: 2024A063682

PATIENT
  Age: 60 Year
  Sex: Female

DRUGS (1)
  1. TEZSPIRE [Suspect]
     Active Substance: TEZEPELUMAB-EKKO

REACTIONS (6)
  - Cardiac failure [Unknown]
  - Cardiac disorder [Unknown]
  - Asthma [Unknown]
  - Bronchiectasis [Unknown]
  - Bronchitis [Unknown]
  - Intentional product misuse [Unknown]
